FAERS Safety Report 21094184 (Version 3)
Quarter: 2023Q1

REPORT INFORMATION
  Report Type: Other
  Country: US (occurrence: None)
  Receive Date: 20220718
  Receipt Date: 20230216
  Transmission Date: 20230417
  Serious: Yes (Hospitalization, Other)
  Sender: FDA-Public Use
  Company Number: US-ROCHE-3134439

PATIENT
  Age: 53 Year
  Sex: Female
  Weight: 132.57 kg

DRUGS (17)
  1. OCREVUS [Suspect]
     Active Substance: OCRELIZUMAB
     Indication: Relapsing multiple sclerosis
     Route: 042
  2. OCREVUS [Suspect]
     Active Substance: OCRELIZUMAB
     Indication: Primary progressive multiple sclerosis
  3. OCREVUS [Suspect]
     Active Substance: OCRELIZUMAB
     Indication: Secondary progressive multiple sclerosis
  4. TECFIDERA [Suspect]
     Active Substance: DIMETHYL FUMARATE
     Indication: Product used for unknown indication
     Route: 065
  5. REBIF [Suspect]
     Active Substance: INTERFERON BETA-1A
     Indication: Product used for unknown indication
     Route: 065
  6. ALBUTEROL [Concomitant]
     Active Substance: ALBUTEROL
  7. AMITRIPTYLINE [Concomitant]
     Active Substance: AMITRIPTYLINE
  8. CHOLESTYRAMINE [Concomitant]
     Active Substance: CHOLESTYRAMINE
  9. CYANOCOBALAMIN [Concomitant]
     Active Substance: CYANOCOBALAMIN
  10. DICYCLOMINE [Concomitant]
     Active Substance: DICYCLOMINE HYDROCHLORIDE
  11. HYDROXYZINE [Concomitant]
     Active Substance: HYDROXYZINE HYDROCHLORIDE
  12. LEVOTHYROXINE [Concomitant]
     Active Substance: LEVOTHYROXINE
  13. MECLIZINE [Concomitant]
     Active Substance: MECLIZINE HYDROCHLORIDE
  14. MONTELUKAST SODIUM [Concomitant]
     Active Substance: MONTELUKAST SODIUM
  15. ONDANSETRON [Concomitant]
     Active Substance: ONDANSETRON
  16. PANTOPRAZOLE [Concomitant]
     Active Substance: PANTOPRAZOLE
  17. RIZATRIPTAN [Concomitant]
     Active Substance: RIZATRIPTAN

REACTIONS (8)
  - Multiple sclerosis [Unknown]
  - Urinary bladder rupture [Unknown]
  - Urinary retention [Not Recovered/Not Resolved]
  - Sleep apnoea syndrome [Not Recovered/Not Resolved]
  - Depression [Not Recovered/Not Resolved]
  - Anxiety [Not Recovered/Not Resolved]
  - Blood cholesterol increased [Not Recovered/Not Resolved]
  - Nausea [Unknown]

NARRATIVE: CASE EVENT DATE: 20210701
